FAERS Safety Report 7613467 (Version 6)
Quarter: 2017Q4

REPORT INFORMATION
  Report Type: Report from Study
  Country: US (occurrence: US)
  Receive Date: 20100930
  Receipt Date: 20171024
  Transmission Date: 20180321
  Serious: Yes (Hospitalization, Other)
  Sender: FDA-Public Use
  Company Number: US-ROCHE-729622

PATIENT
  Sex: Female

DRUGS (11)
  1. TEMSIROLIMUS [Suspect]
     Active Substance: TEMSIROLIMUS
     Indication: GENITAL NEOPLASM MALIGNANT FEMALE
     Dosage: DAY 1, 8 AND 15 DAY CYCLE, DOSE LEVEL 1-2
     Route: 042
  2. LIPOSOMAL DOXORUBICIN [Suspect]
     Active Substance: DOXORUBICIN HYDROCHLORIDE
     Indication: METAPLASTIC BREAST CARCINOMA
     Dosage: DAY 1 OF EACH 21 DAY CYCLE, DOSE LEVEL 1
     Route: 042
  3. LIPOSOMAL DOXORUBICIN [Suspect]
     Active Substance: DOXORUBICIN HYDROCHLORIDE
     Indication: GENITAL NEOPLASM MALIGNANT FEMALE
     Dosage: DAY 1 OF EACH 21 DAY CYCLE, DOSE LEVEL 1
     Route: 042
  4. EVEROLIMUS. [Suspect]
     Active Substance: EVEROLIMUS
     Indication: METAPLASTIC BREAST CARCINOMA
     Route: 048
  5. EVEROLIMUS. [Suspect]
     Active Substance: EVEROLIMUS
     Indication: GENITAL NEOPLASM MALIGNANT FEMALE
     Route: 048
  6. TEMSIROLIMUS [Suspect]
     Active Substance: TEMSIROLIMUS
     Indication: METAPLASTIC BREAST CARCINOMA
     Dosage: DOSE LEVEL 3-7.
     Route: 042
  7. LIPOSOMAL DOXORUBICIN [Suspect]
     Active Substance: DOXORUBICIN HYDROCHLORIDE
     Dosage: DAY 1 OF EACH 21 DAY CYCLE, DOSE LEVEL 7
     Route: 042
  8. BEVACIZUMAB. [Suspect]
     Active Substance: BEVACIZUMAB
     Indication: GENITAL NEOPLASM MALIGNANT FEMALE
     Dosage: DAY 1 OF EACH 21 CYCLE, DOSE LEVEL 1-3
     Route: 042
  9. BEVACIZUMAB. [Suspect]
     Active Substance: BEVACIZUMAB
     Indication: METAPLASTIC BREAST CARCINOMA
     Dosage: DAY 1 OF EACH 21 CYCLE, DOSE LEVEL 4
     Route: 042
  10. BEVACIZUMAB. [Suspect]
     Active Substance: BEVACIZUMAB
     Dosage: DAY 1 OF EACH 21 CYCLE, DOSE LEVEL 5-7
     Route: 042
  11. LIPOSOMAL DOXORUBICIN [Suspect]
     Active Substance: DOXORUBICIN HYDROCHLORIDE
     Dosage: DAY 1 OF EACH 21 DAY CYCLE, DOSE LEVEL 6
     Route: 042

REACTIONS (20)
  - Liver function test abnormal [Unknown]
  - Fatigue [Unknown]
  - Palmar-plantar erythrodysaesthesia syndrome [Unknown]
  - Blood creatinine increased [Unknown]
  - Hypercholesterolaemia [Unknown]
  - Anaemia [Unknown]
  - Hypertension [Unknown]
  - Cardiac disorder [Unknown]
  - Pancreatitis [Unknown]
  - Gastric ulcer haemorrhage [Unknown]
  - Urogenital fistula [Unknown]
  - Headache [Unknown]
  - Cardiac failure [Unknown]
  - Fistula [Unknown]
  - Hypertriglyceridaemia [Unknown]
  - Thrombocytopenia [Unknown]
  - Mucosal inflammation [Unknown]
  - Neutropenia [Unknown]
  - Infection [Unknown]
  - Sialoadenitis [Unknown]
